FAERS Safety Report 6235549-2 (Version None)
Quarter: 2009Q2

REPORT INFORMATION
  Report Type: 
  Country: None (occurrence: None)
  Receive Date: 20090618
  Receipt Date: 20090211
  Transmission Date: 20091009
  Serious: No
  Sender: FDA-Public Use
  Company Number: US-ASTRAZENECA-2008UW27965

PATIENT
  Sex: Male

DRUGS (1)
  1. RHINOCORT [Suspect]
     Dosage: 32 MCG SPRAY/UNIT
     Route: 045

REACTIONS (1)
  - LIMB INJURY [None]
